FAERS Safety Report 16515859 (Version 6)
Quarter: 2020Q4

REPORT INFORMATION
  Report Type: Spontaneous
  Country: US (occurrence: US)
  Receive Date: 20190702
  Receipt Date: 20201127
  Transmission Date: 20210113
  Serious: No
  Sender: FDA-Public Use
  Company Number: US-PFIZER INC-2019273316

PATIENT
  Age: 44 Year
  Sex: Female

DRUGS (1)
  1. LYRICA [Suspect]
     Active Substance: PREGABALIN
     Dosage: 400 MG, DAILY [100MG Q6, EVERY 6 HOURS AS DIRECTED BY PHYSICIAN]
     Route: 048

REACTIONS (3)
  - Gallbladder disorder [Unknown]
  - Musculoskeletal disorder [Unknown]
  - Intentional product misuse [Unknown]
